FAERS Safety Report 11440001 (Version 1)
Quarter: 2015Q3

REPORT INFORMATION
  Report Type: Spontaneous
  Country: US (occurrence: US)
  Receive Date: 20150901
  Receipt Date: 20150901
  Transmission Date: 20151125
  Serious: No
  Sender: FDA-Public Use
  Company Number: US-ROCHE-1125533

PATIENT
  Sex: Male

DRUGS (2)
  1. PEGASYS [Suspect]
     Active Substance: PEGINTERFERON ALFA-2A
     Indication: CHRONIC HEPATITIS C
     Route: 058
     Dates: start: 20120817
  2. COPEGUS [Suspect]
     Active Substance: RIBAVIRIN
     Indication: CHRONIC HEPATITIS C
     Route: 065
     Dates: start: 20120817

REACTIONS (13)
  - Anxiety [Unknown]
  - Tongue haemorrhage [Unknown]
  - Tongue discolouration [Unknown]
  - Fluid intake reduced [Unknown]
  - Dry mouth [Unknown]
  - Chills [Unknown]
  - Pyrexia [Unknown]
  - Aggression [Unknown]
  - Stomatitis [Unknown]
  - Transient ischaemic attack [Unknown]
  - Hemiplegia [Unknown]
  - Drug dose omission [Unknown]
  - Dysphonia [Unknown]
